FAERS Safety Report 8064519-7 (Version None)
Quarter: 2012Q1

REPORT INFORMATION
  Report Type: 
  Country: None (occurrence: None)
  Receive Date: 20120123
  Receipt Date: 20120118
  Transmission Date: 20120608
  Serious: Yes (Other)
  Sender: FDA-Public Use
  Company Number: US-PFIZER INC-2012014900

PATIENT
  Sex: Female
  Weight: 90.703 kg

DRUGS (4)
  1. VICOPROFEN [Concomitant]
     Indication: PAIN
     Dosage: UNK
  2. LYRICA [Suspect]
     Indication: PAIN IN EXTREMITY
  3. LYRICA [Suspect]
     Indication: BACK PAIN
     Dosage: 75 MG, 2X/DAY
     Route: 048
  4. IBUPROFEN [Concomitant]
     Indication: PAIN
     Dosage: 100MG, UNK

REACTIONS (3)
  - PAIN IN EXTREMITY [None]
  - MUSCLE SPASMS [None]
  - CARDIAC DISORDER [None]
